FAERS Safety Report 22847355 (Version 2)
Quarter: 2023Q4

REPORT INFORMATION
  Report Type: Spontaneous
  Country: JP (occurrence: JP)
  Receive Date: 20230822
  Receipt Date: 20231002
  Transmission Date: 20240110
  Serious: Yes (Life-Threatening, Hospitalization)
  Sender: FDA-Public Use
  Company Number: JP-CHUGAI-2023029682

PATIENT
  Age: 73 Year
  Sex: Female
  Weight: 52.5 kg

DRUGS (5)
  1. ACTEMRA [Suspect]
     Active Substance: TOCILIZUMAB
     Indication: Rheumatoid arthritis
     Route: 058
     Dates: start: 20230614, end: 20230728
  2. AZULFIDINE EN-TABS [Concomitant]
     Active Substance: SULFASALAZINE
     Dosage: UNK
     Dates: start: 20210811
  3. IGURATIMOD [Concomitant]
     Active Substance: IGURATIMOD
     Dosage: UNK
     Dates: start: 20210908
  4. CELECOXIB [Concomitant]
     Active Substance: CELECOXIB
     Dosage: UNK
  5. ALENDRONATE [Concomitant]
     Active Substance: ALENDRONATE SODIUM
     Dosage: UNK
     Dates: start: 20221121

REACTIONS (2)
  - Cardiac failure [Recovered/Resolved]
  - Fall [Unknown]

NARRATIVE: CASE EVENT DATE: 20230729
